FAERS Safety Report 6509999-0 (Version None)
Quarter: 2009Q4

REPORT INFORMATION
  Report Type: 
  Country: None (occurrence: None)
  Receive Date: 20091222
  Receipt Date: 20090205
  Transmission Date: 20100525
  Serious: No
  Sender: FDA-Public Use
  Company Number: US-ABBOTT-09P-163-0502271-00

PATIENT
  Sex: Female
  Weight: 38.59 kg

DRUGS (2)
  1. OMNICEF [Suspect]
     Indication: SINUSITIS
     Route: 048
     Dates: start: 20090118
  2. OMNICEF [Suspect]
     Indication: STREPTOCOCCAL INFECTION

REACTIONS (1)
  - LIVER FUNCTION TEST ABNORMAL [None]
